FAERS Safety Report 18081641 (Version 1)
Quarter: 2020Q3

REPORT INFORMATION
  Report Type: Report from Study
  Country: US (occurrence: US)
  Receive Date: 20200728
  Receipt Date: 20200728
  Transmission Date: 20201103
  Serious: Yes (Hospitalization)
  Sender: FDA-Public Use
  Company Number: US-JNJFOC-20200726313

PATIENT
  Age: 62 Year
  Sex: Female

DRUGS (6)
  1. PLAQUENIL                          /00072602/ [Concomitant]
     Active Substance: HYDROXYCHLOROQUINE DIPHOSPHATE
  2. MEDROL [Concomitant]
     Active Substance: METHYLPREDNISOLONE
  3. SKELAXIN [Concomitant]
     Active Substance: METAXALONE
  4. MELOXICAM. [Concomitant]
     Active Substance: MELOXICAM
  5. STELARA [Suspect]
     Active Substance: USTEKINUMAB
     Indication: COLITIS ULCERATIVE
     Route: 058
     Dates: start: 20200403
  6. STELARA [Suspect]
     Active Substance: USTEKINUMAB

REACTIONS (1)
  - Infection [Not Recovered/Not Resolved]

NARRATIVE: CASE EVENT DATE: 2020
